FAERS Safety Report 10032421 (Version 1)
Quarter: 2014Q1

REPORT INFORMATION
  Report Type: Spontaneous
  Country: FR (occurrence: None)
  Receive Date: 20140320
  Receipt Date: 20140320
  Transmission Date: 20141002
  Serious: Yes (Hospitalization)
  Sender: FDA-Public Use
  Company Number: 2238425

PATIENT
  Age: 66 Year
  Sex: Male

DRUGS (2)
  1. CARBOPLATIN [Suspect]
     Indication: CHEMOTHERAPY
     Dosage: 600 MG MILLIGRAM(S), UNKNOWN, PARENTERAL
     Route: 051
     Dates: start: 20131112
  2. 5-FU [Suspect]
     Indication: CHEMOTHERAPY
     Dosage: UNKNOWN, UNKNOWN, PARENTERAL
     Route: 051
     Dates: start: 20131112

REACTIONS (2)
  - Purpura [None]
  - Hypersensitivity vasculitis [None]
